FAERS Safety Report 8354304-0 (Version None)
Quarter: 2012Q2

REPORT INFORMATION
  Report Type: 
  Country: None (occurrence: None)
  Receive Date: 20120511
  Receipt Date: 20110113
  Transmission Date: 20120825
  Serious: No
  Sender: FDA-Public Use
  Company Number: US-TEVA-2011000195

PATIENT
  Sex: Female
  Weight: 67.646 kg

DRUGS (6)
  1. NUVIGIL [Suspect]
     Indication: MYASTHENIA GRAVIS
     Dosage: 150 MILLIGRAM;
     Route: 048
     Dates: start: 20110112
  2. PLAQUENIL [Concomitant]
     Dates: start: 20090101
  3. PREDNISONE TAB [Concomitant]
  4. LEXAPRO [Concomitant]
     Dates: start: 20100701
  5. TRAZODONE HCL [Concomitant]
     Dates: start: 20100701
  6. MYCOPHENOLATE MOFETIL (CELLCEPT) [Concomitant]
     Dates: start: 20090301

REACTIONS (3)
  - RESTLESSNESS [None]
  - INSOMNIA [None]
  - FATIGUE [None]
